FAERS Safety Report 7029841-1 (Version None)
Quarter: 2010Q4

REPORT INFORMATION
  Report Type: 
  Country: None (occurrence: None)
  Receive Date: 20101006
  Receipt Date: 20100927
  Transmission Date: 20110411
  Serious: Yes (Hospitalization)
  Sender: FDA-Public Use
  Company Number: US-BIOGENIDEC-2010BI034116

PATIENT
  Age: 53 Year
  Sex: Female

DRUGS (2)
  1. AVONEX [Suspect]
     Indication: MULTIPLE SCLEROSIS
     Route: 030
     Dates: start: 20020831, end: 20060701
  2. AVONEX [Suspect]
     Route: 030
     Dates: start: 20100221

REACTIONS (8)
  - BALANCE DISORDER [None]
  - FALL [None]
  - INFLUENZA LIKE ILLNESS [None]
  - INTERVERTEBRAL DISC PROTRUSION [None]
  - LIMB CRUSHING INJURY [None]
  - MEDICAL DEVICE SITE REACTION [None]
  - OSTEOPOROSIS [None]
  - TOOTH LOSS [None]
